FAERS Safety Report 10343784 (Version 2)
Quarter: 2014Q4

REPORT INFORMATION
  Report Type: Report from Study
  Country: BR (occurrence: BR)
  Receive Date: 20140725
  Receipt Date: 20141031
  Transmission Date: 20150528
  Serious: Yes (Hospitalization, Other)
  Sender: FDA-Public Use
  Company Number: BR-ABBVIE-14K-020-1262288-00

PATIENT
  Sex: Male
  Weight: 98 kg

DRUGS (1)
  1. HUMIRA [Suspect]
     Active Substance: ADALIMUMAB
     Indication: RHEUMATOID ARTHRITIS
     Route: 058
     Dates: start: 20070107, end: 20130812

REACTIONS (7)
  - Umbilical hernia [Recovered/Resolved]
  - Platelet count decreased [Not Recovered/Not Resolved]
  - Psoriasis [Recovering/Resolving]
  - Immunodeficiency [Unknown]
  - Skin discolouration [Recovered/Resolved]
  - Prostate cancer [Unknown]
  - Hospitalisation [Unknown]
